FAERS Safety Report 7583943-X (Version None)
Quarter: 2011Q2

REPORT INFORMATION
  Report Type: 
  Country: None (occurrence: None)
  Receive Date: 20110630
  Receipt Date: 20110621
  Transmission Date: 20111010
  Serious: Yes (Hospitalization)
  Sender: FDA-Public Use
  Company Number: US-ELI_LILLY_AND_COMPANY-US201106006159

PATIENT
  Sex: Female
  Weight: 123.36 kg

DRUGS (15)
  1. VALIUM [Concomitant]
     Dosage: UNK, QD
  2. LISINOPRIL [Concomitant]
     Dosage: UNK, QD
  3. NORCO [Concomitant]
     Dosage: UNK, QD
  4. TIMOLOL MALEATE [Concomitant]
     Dosage: UNK, QD
  5. VITAMIN D [Concomitant]
     Dosage: 50000 IU, WEEKLY (1/W)
  6. NEXIUM [Concomitant]
     Dosage: UNK, QD
  7. PREDNISONE [Concomitant]
     Dosage: UNK, QD
  8. ASPIRIN [Concomitant]
     Dosage: UNK, QD
  9. ZOLOFT [Concomitant]
     Dosage: UNK, QD
  10. BYETTA [Suspect]
     Indication: TYPE 2 DIABETES MELLITUS
     Dosage: 5 UG, BID
     Dates: start: 20110101
  11. CYMBALTA [Concomitant]
     Dosage: UNK, QD
  12. LIALDA [Concomitant]
     Dosage: UNK, BID
  13. CRESTOR [Concomitant]
     Dosage: 20 MG, QD
  14. CIMZIA [Concomitant]
     Dosage: UNK, MONTHLY (1/M)
  15. LOVAZA [Concomitant]
     Dosage: UNK, BID

REACTIONS (12)
  - OXYGEN SATURATION ABNORMAL [None]
  - ABDOMINAL PAIN [None]
  - RESPIRATION ABNORMAL [None]
  - SNORING [None]
  - CHOKING [None]
  - CHOLELITHIASIS [None]
  - OBSTRUCTIVE AIRWAYS DISORDER [None]
  - WEIGHT DECREASED [None]
  - GALLBLADDER NON-FUNCTIONING [None]
  - NERVOUSNESS [None]
  - SLEEP APNOEA SYNDROME [None]
  - DECREASED APPETITE [None]
